FAERS Safety Report 15761461 (Version 1)
Quarter: 2018Q4

REPORT INFORMATION
  Report Type: Spontaneous
  Country: IT (occurrence: IT)
  Receive Date: 20181226
  Receipt Date: 20181226
  Transmission Date: 20190205
  Serious: Yes (Hospitalization, Other)
  Sender: FDA-Public Use
  Company Number: IT-MYLANLABS-2018M1093922

PATIENT
  Age: 60 Year
  Sex: Male

DRUGS (3)
  1. CYCLOPHOSPHAMIDE. [Suspect]
     Active Substance: CYCLOPHOSPHAMIDE
     Indication: CONGENITAL SYPHILITIC OSTEOCHONDRITIS
     Route: 065
  2. RITUXIMAB. [Suspect]
     Active Substance: RITUXIMAB
     Indication: CONGENITAL SYPHILITIC OSTEOCHONDRITIS
     Route: 065
  3. METHOTREXATE. [Suspect]
     Active Substance: METHOTREXATE
     Indication: CONGENITAL SYPHILITIC OSTEOCHONDRITIS
     Route: 065

REACTIONS (5)
  - Hypogammaglobulinaemia [Unknown]
  - Glottis carcinoma [Recovered/Resolved]
  - Squamous cell carcinoma [Recovered/Resolved]
  - Lymphopenia [Unknown]
  - Laboratory test interference [Unknown]
